FAERS Safety Report 5095500-8 (Version None)
Quarter: 2006Q3

REPORT INFORMATION
  Report Type: 
  Country: None (occurrence: None)
  Receive Date: 20060831
  Receipt Date: 20060831
  Transmission Date: 20061208
  Serious: Yes (Hospitalization)
  Sender: FDA-Public Use
  Company Number: None

PATIENT
  Sex: Male
  Weight: 63.5 kg

DRUGS (3)
  1. FLUOROURACIL [Suspect]
     Indication: NASOPHARYNGEAL CANCER
     Dosage: 600 MG/M2 IV QD
     Route: 042
     Dates: start: 20060820, end: 20060825
  2. HYDREA [Suspect]
     Indication: NASOPHARYNGEAL CANCER
     Dosage: 500 MG PO BID
     Route: 048
     Dates: start: 20060820, end: 20060825
  3. IRESSA [Suspect]
     Dosage: 300 MG/M2 QD
     Dates: start: 20060626

REACTIONS (2)
  - NAUSEA [None]
  - VOMITING [None]
